FAERS Safety Report 5385540-3 (Version None)
Quarter: 2007Q3

REPORT INFORMATION
  Report Type: 
  Country: None (occurrence: None)
  Receive Date: 20070712
  Receipt Date: 20070706
  Transmission Date: 20080115
  Serious: Yes (Hospitalization)
  Sender: FDA-Public Use
  Company Number: B0454145A

PATIENT
  Sex: Female
  Weight: 3.1 kg

DRUGS (3)
  1. PAXIL [Suspect]
     Indication: DRUG USE FOR UNKNOWN INDICATION
     Dates: start: 20060401
  2. CEFOTAX [Concomitant]
     Dosage: .3MG THREE TIMES PER DAY
     Route: 065
     Dates: start: 20061222
  3. SOLANAX [Concomitant]
     Dates: start: 20061215

REACTIONS (9)
  - DRUG EXPOSURE DURING PREGNANCY [None]
  - HYPERAESTHESIA [None]
  - HYPERVENTILATION [None]
  - INTERSTITIAL LUNG DISEASE [None]
  - IRRITABILITY [None]
  - LUNG DISORDER [None]
  - MECONIUM STAIN [None]
  - RESPIRATORY DISORDER NEONATAL [None]
  - TACHYPNOEA [None]
